FAERS Safety Report 8119868-0 (Version None)
Quarter: 2012Q1

REPORT INFORMATION
  Report Type: 
  Country: None (occurrence: None)
  Receive Date: 20120207
  Receipt Date: 20120202
  Transmission Date: 20120608
  Serious: Yes (Other)
  Sender: FDA-Public Use
  Company Number: IL-PFIZER INC-2012028650

PATIENT
  Age: 37 Year
  Sex: Female

DRUGS (1)
  1. XALATAN [Suspect]
     Indication: OCULAR HYPERTENSION

REACTIONS (2)
  - PRURITUS GENERALISED [None]
  - DERMATITIS BULLOUS [None]
